FAERS Safety Report 9104711 (Version 2)
Quarter: 2015Q2

REPORT INFORMATION
  Report Type: Report from Study
  Country: TR (occurrence: TR)
  Receive Date: 20130219
  Receipt Date: 20150415
  Transmission Date: 20150821
  Serious: Yes (Other)
  Sender: FDA-Public Use
  Company Number: TR-ROCHE-1186724

PATIENT
  Age: 70 Year
  Sex: Female
  Weight: 79 kg

DRUGS (9)
  1. ZYRTEC [Concomitant]
     Active Substance: CETIRIZINE HYDROCHLORIDE
     Route: 065
     Dates: start: 20121130, end: 20121219
  2. VEMURAFENIB [Suspect]
     Active Substance: VEMURAFENIB
     Route: 048
     Dates: start: 20130123
  3. NOVALGIN (TURKEY) [Concomitant]
     Route: 065
     Dates: start: 20121225, end: 20130601
  4. DEXAMETHASONE. [Concomitant]
     Active Substance: DEXAMETHASONE
     Dosage: 0.75 MG (1X1)
     Route: 065
     Dates: start: 20121206, end: 20121209
  5. VEMURAFENIB [Suspect]
     Active Substance: VEMURAFENIB
     Indication: MALIGNANT MELANOMA
     Dosage: LAST DOSE PRIOR TO SAE: 23/JAN/2013
     Route: 048
     Dates: start: 20121120
  6. AMLODIPINE BESYLATE. [Concomitant]
     Active Substance: AMLODIPINE BESYLATE
     Route: 065
     Dates: start: 2002
  7. DEXAMETHASONE. [Concomitant]
     Active Substance: DEXAMETHASONE
     Dosage: 0.75 MG (2X1)
     Route: 065
     Dates: start: 20121130, end: 20121205
  8. BELOC-ZOK [Concomitant]
     Active Substance: METOPROLOL SUCCINATE
     Route: 065
     Dates: start: 2002, end: 20130704
  9. HYDROCHLOROTHIAZIDE W/ CILAZAPRIL [Concomitant]
     Active Substance: CILAZAPRIL ANHYDROUS\HYDROCHLOROTHIAZIDE
     Dosage: 5/12.5 MG
     Route: 065
     Dates: start: 2002

REACTIONS (3)
  - Hyperkeratosis [Recovered/Resolved]
  - Acanthoma [Recovered/Resolved]
  - Basal cell carcinoma [Recovered/Resolved]

NARRATIVE: CASE EVENT DATE: 20130118
